FAERS Safety Report 10170950 (Version 1)
Quarter: 2014Q2

REPORT INFORMATION
  Report Type: Spontaneous
  Country: GB (occurrence: None)
  Receive Date: 20140424
  Receipt Date: 20140424
  Transmission Date: 20141212
  Serious: Yes (Other)
  Sender: FDA-Public Use
  Company Number: E2B_00001749

PATIENT
  Age: 29 Year
  Sex: Female

DRUGS (2)
  1. QUETIAPINE [Suspect]
     Indication: MOOD DISORDER DUE TO A GENERAL MEDICAL CONDITION
     Route: 048
     Dates: start: 20131211
  2. SERTRALINE (UNKNOWN) (SERTRALINE HYDROCHLORIDE) [Concomitant]

REACTIONS (3)
  - Abnormal dreams [None]
  - Nightmare [None]
  - Withdrawal syndrome [None]
